FAERS Safety Report 16115682 (Version 4)
Quarter: 2019Q3

REPORT INFORMATION
  Report Type: Spontaneous
  Country: FR (occurrence: FR)
  Receive Date: 20190326
  Receipt Date: 20190712
  Transmission Date: 20191004
  Serious: Yes (Other)
  Sender: FDA-Public Use
  Company Number: FR-PROVELL PHARMACEUTICALS-2064563

PATIENT
  Age: 82 Year
  Sex: Male
  Weight: 88 kg

DRUGS (2)
  1. EUTHYROX [Suspect]
     Active Substance: LEVOTHYROXINE SODIUM
  2. EUTHYROX [Suspect]
     Active Substance: LEVOTHYROXINE SODIUM
     Indication: AUTOIMMUNE THYROIDITIS

REACTIONS (11)
  - Syncope [None]
  - Irritability [None]
  - Muscle spasms [None]
  - Hyperkalaemia [None]
  - Essential hypertension [Recovered/Resolved]
  - Benign prostatic hyperplasia [None]
  - Mediastinal mass [None]
  - Vertigo [None]
  - Malaise [None]
  - Vision blurred [Unknown]
  - Pleural calcification [None]

NARRATIVE: CASE EVENT DATE: 2017
